FAERS Safety Report 8822117 (Version 2)
Quarter: 2012Q4

REPORT INFORMATION
  Report Type: 
  Country: JP (occurrence: JP)
  Receive Date: 20121003
  Receipt Date: 20121109
  Transmission Date: 20130627
  Serious: Yes (Hospitalization)
  Sender: FDA-Public Use
  Company Number: JP-009507513-1209JPN010515

PATIENT
  Age: 62 Year
  Sex: Female
  Weight: 71 kg

DRUGS (20)
  1. PEGINTRON [Suspect]
     Indication: HEPATITIS C
     Dosage: 1.5 Microgram per kilogram, qw
     Route: 058
     Dates: start: 20120719, end: 20120809
  2. PEGINTRON [Suspect]
     Dosage: 0.75 Microgram per kilogram, qw
     Route: 058
     Dates: start: 20120816
  3. PEGINTRON [Suspect]
     Dosage: 0.8 Microgram per kilogram,qw
     Route: 058
  4. REBETOL [Suspect]
     Indication: HEPATITIS C
     Dosage: 800 mg, qd
     Route: 048
     Dates: start: 20120719, end: 20120730
  5. REBETOL [Suspect]
     Dosage: 600 mg, qd
     Route: 048
     Dates: start: 20120731, end: 20120804
  6. REBETOL [Suspect]
     Dosage: 400 mg, qd
     Route: 048
     Dates: start: 20120805, end: 20120813
  7. REBETOL [Suspect]
     Dosage: 200 mg, qd
     Route: 048
     Dates: start: 20120814, end: 20120913
  8. REBETOL [Suspect]
     Dosage: 400 mg,qd
     Route: 048
     Dates: start: 20120914
  9. TELAVIC [Suspect]
     Indication: HEPATITIS C
     Dosage: 2250 mg, qd
     Route: 048
     Dates: start: 20120719, end: 20120719
  10. TELAVIC [Suspect]
     Dosage: 2250 mg, qd
     Route: 048
     Dates: start: 20120724, end: 20120725
  11. TELAVIC [Suspect]
     Dosage: 1500 mg, UNK
     Route: 048
     Dates: start: 20120726
  12. CONSTAN [Concomitant]
     Dosage: 0.4 g, tid
     Route: 048
  13. TALION (BEPOTASTINE BESYLATE) [Concomitant]
     Dosage: 1 DF, qd
     Route: 048
  14. AMLODIPINE [Concomitant]
     Dosage: 5 g, qd
     Route: 048
  15. KALLIDINOGENASE [Concomitant]
     Dosage: 1 DF, qd
     Route: 048
  16. SOLDEM 1 [Concomitant]
     Dosage: UNK
     Route: 042
     Dates: start: 20120719, end: 20120723
  17. SOLDEM 1 [Concomitant]
     Dosage: UNK
     Route: 042
     Dates: start: 20120723, end: 20120809
  18. PRIMPERAN [Concomitant]
     Dosage: UNK
     Route: 042
     Dates: start: 20120719, end: 20120723
  19. BFLUID [Concomitant]
     Dosage: UNK
     Route: 041
     Dates: start: 20120810, end: 20120822
  20. GLUACETO [Concomitant]
     Dosage: UNK
     Route: 041
     Dates: start: 20120815, end: 20120822

REACTIONS (3)
  - Vomiting [Not Recovered/Not Resolved]
  - Nausea [Not Recovered/Not Resolved]
  - Diarrhoea [Recovering/Resolving]
